FAERS Safety Report 5798413-9 (Version None)
Quarter: 2008Q2

REPORT INFORMATION
  Report Type: 
  Country: None (occurrence: None)
  Receive Date: 20080630
  Receipt Date: 20080616
  Transmission Date: 20081010
  Serious: Yes (Other)
  Sender: FDA-Public Use
  Company Number: 100#08#2008-03229

PATIENT
  Sex: Female

DRUGS (4)
  1. WARFARIN SODIUM [Suspect]
     Indication: DRUG EXPOSURE DURING PREGNANCY
     Dosage: 5-6 MG A DAY; TRANSPLACENTAL; TRANSPLACENTAL
     Route: 064
  2. WARFARIN SODIUM [Suspect]
     Indication: DRUG EXPOSURE DURING PREGNANCY
     Dosage: 5-6 MG A DAY; TRANSPLACENTAL; TRANSPLACENTAL
     Route: 064
  3. ENOXAPARIN SODIUM [Suspect]
     Indication: DRUG EXPOSURE DURING PREGNANCY
     Dosage: FIRST 10000 U/DAY AND THEN 8000 U/DAY;
     Route: 058
  4. HEPARIN [Suspect]
     Indication: DRUG EXPOSURE DURING PREGNANCY
     Dosage: 8000 U/DAY

REACTIONS (11)
  - CAESAREAN SECTION [None]
  - CEREBRAL ATROPHY [None]
  - CEREBRAL HAEMORRHAGE NEONATAL [None]
  - CEREBRAL VENTRICLE DILATATION [None]
  - DRUG EXPOSURE DURING PREGNANCY [None]
  - FOETAL GROWTH RETARDATION [None]
  - HEAD CIRCUMFERENCE ABNORMAL [None]
  - MATERNAL DRUGS AFFECTING FOETUS [None]
  - MUSCULAR WEAKNESS [None]
  - PORENCEPHALY [None]
  - SUBDURAL HAEMATOMA [None]
